FAERS Safety Report 8075611-5 (Version None)
Quarter: 2012Q1

REPORT INFORMATION
  Report Type: 
  Country: None (occurrence: None)
  Receive Date: 20120117
  Receipt Date: 20120112
  Transmission Date: 20120608
  Serious: Yes (Other)
  Sender: FDA-Public Use
  Company Number: AUR-APL-2012-00474

PATIENT
  Age: 83 Year
  Sex: Male

DRUGS (13)
  1. XALACOM (XALACOM) [Concomitant]
  2. PHENOBARBITAL TAB [Concomitant]
  3. LEVETIRACETAM [Suspect]
     Indication: STATUS EPILEPTICUS
     Dosage: 1000 MG (500 MG,2 IN 1 D),ORAL ; 500 MG (250 MG,2 IN 1 D),ORAL ; 500 MG (500  MG,1 IN 1 D),ORAL
     Route: 048
     Dates: start: 20111103, end: 20111122
  4. LEVETIRACETAM [Suspect]
     Indication: GRAND MAL CONVULSION
     Dosage: 1000 MG (500 MG,2 IN 1 D),ORAL ; 500 MG (250 MG,2 IN 1 D),ORAL ; 500 MG (500  MG,1 IN 1 D),ORAL
     Route: 048
     Dates: start: 20111103, end: 20111122
  5. LEVETIRACETAM [Suspect]
     Indication: STATUS EPILEPTICUS
     Dosage: 1000 MG (500 MG,2 IN 1 D),ORAL ; 500 MG (250 MG,2 IN 1 D),ORAL ; 500 MG (500  MG,1 IN 1 D),ORAL
     Route: 048
     Dates: start: 20111123
  6. LEVETIRACETAM [Suspect]
     Indication: GRAND MAL CONVULSION
     Dosage: 1000 MG (500 MG,2 IN 1 D),ORAL ; 500 MG (250 MG,2 IN 1 D),ORAL ; 500 MG (500  MG,1 IN 1 D),ORAL
     Route: 048
     Dates: start: 20111123
  7. LEVETIRACETAM [Suspect]
     Indication: STATUS EPILEPTICUS
     Dosage: 1000 MG (500 MG,2 IN 1 D),ORAL ; 500 MG (250 MG,2 IN 1 D),ORAL ; 500 MG (500  MG,1 IN 1 D),ORAL
     Route: 048
     Dates: start: 20111020, end: 20111102
  8. LEVETIRACETAM [Suspect]
     Indication: GRAND MAL CONVULSION
     Dosage: 1000 MG (500 MG,2 IN 1 D),ORAL ; 500 MG (250 MG,2 IN 1 D),ORAL ; 500 MG (500  MG,1 IN 1 D),ORAL
     Route: 048
     Dates: start: 20111020, end: 20111102
  9. SIMVASTATIN [Concomitant]
  10. ENOXAPARIN SODIUM [Concomitant]
  11. PHENYTOIN [Concomitant]
  12. FORTISIP (FORTISIP) [Concomitant]
  13. SENNA-MINT WAF [Concomitant]

REACTIONS (4)
  - BLOOD UREA INCREASED [None]
  - BLOOD SODIUM INCREASED [None]
  - THROMBOCYTOPENIA [None]
  - NEUTROPENIA [None]
